FAERS Safety Report 16224943 (Version 3)
Quarter: 2019Q2

REPORT INFORMATION
  Report Type: Spontaneous
  Country: GB (occurrence: GB)
  Receive Date: 20190422
  Receipt Date: 20190502
  Transmission Date: 20190711
  Serious: Yes (Hospitalization, Other)
  Sender: FDA-Public Use
  Company Number: GB-MYLANLABS-2019M1037078

PATIENT
  Weight: .65 kg

DRUGS (3)
  1. GLYCERYL TRINITRATE [Suspect]
     Active Substance: NITROGLYCERIN
     Dosage: 10 DOSAGE FORM
     Route: 062
  2. GLYCERYL TRINITRATE [Suspect]
     Active Substance: NITROGLYCERIN
     Dosage: 1 DOSAGE FORM, A FUTHER PATCH APPLED TO THE HAND
     Route: 062
  3. GLYCERYL TRINITRATE [Suspect]
     Active Substance: NITROGLYCERIN
     Indication: PERIPHERAL ISCHAEMIA
     Dosage: 3 DOSAGE FORM, TOTAL
     Route: 062

REACTIONS (3)
  - Product use issue [Unknown]
  - Product use in unapproved indication [Unknown]
  - Methaemoglobinaemia [Recovered/Resolved]
